FAERS Safety Report 4393831-8 (Version None)
Quarter: 2004Q3

REPORT INFORMATION
  Report Type: 
  Country: None (occurrence: None)
  Receive Date: 20040707
  Receipt Date: 20040621
  Transmission Date: 20050211
  Serious: Yes (Death)
  Sender: FDA-Public Use
  Company Number: 2004-SW-00165DB

PATIENT
  Age: 46 Year
  Sex: Male

DRUGS (3)
  1. VIRAMUNE [Suspect]
     Dosage: 400 MG (200 MG, 1 IN 12 HR)
     Dates: start: 20040420
  2. VIREAD [Concomitant]
  3. EPIVIR [Concomitant]

REACTIONS (11)
  - COAGULOPATHY [None]
  - FACE OEDEMA [None]
  - HEPATIC ENCEPHALOPATHY [None]
  - HEPATIC FAILURE [None]
  - HEPATORENAL SYNDROME [None]
  - LEUKOCYTOSIS [None]
  - PANCREATITIS [None]
  - PYREXIA [None]
  - RASH [None]
  - RENAL IMPAIRMENT [None]
  - THROMBOCYTOPENIA [None]
